FAERS Safety Report 12582510 (Version 1)
Quarter: 2016Q3

REPORT INFORMATION
  Report Type: Spontaneous
  Country: US (occurrence: None)
  Receive Date: 20160721
  Receipt Date: 20160721
  Transmission Date: 20161109
  Serious: Yes (Hospitalization)
  Sender: FDA-Public Use
  Company Number: None

PATIENT
  Age: 39 Year
  Sex: Female

DRUGS (3)
  1. ENBREL [Suspect]
     Active Substance: ETANERCEPT
     Indication: PSORIASIS
     Dosage: 50MG/ML QWEEK SQ
     Route: 058
     Dates: start: 20160505
  2. ENBREL [Suspect]
     Active Substance: ETANERCEPT
     Indication: PSORIATIC ARTHROPATHY
     Dosage: 50MG/ML QWEEK SQ
     Route: 058
     Dates: start: 20160505
  3. ENBREL [Suspect]
     Active Substance: ETANERCEPT
     Indication: POLYARTHRITIS
     Dosage: 50MG/ML QWEEK SQ
     Route: 058
     Dates: start: 20160505

REACTIONS (2)
  - Bipolar disorder [None]
  - Depression [None]

NARRATIVE: CASE EVENT DATE: 20160626
